FAERS Safety Report 4400901-4 (Version None)
Quarter: 2004Q3

REPORT INFORMATION
  Report Type: 
  Country: None (occurrence: None)
  Receive Date: 20040907
  Receipt Date: 20030731
  Transmission Date: 20050211
  Serious: Yes (Hospitalization)
  Sender: FDA-Public Use
  Company Number: US-BRISTOL-MYERS SQUIBB COMPANY-12342952

PATIENT
  Age: 54 Year
  Sex: Male
  Weight: 93 kg

DRUGS (3)
  1. COUMADIN [Suspect]
     Indication: PULMONARY EMBOLISM
     Route: 048
     Dates: start: 20030313, end: 20030730
  2. PROTONIX [Concomitant]
     Dates: start: 20030710
  3. PREVACID [Concomitant]

REACTIONS (2)
  - PULMONARY EMBOLISM [None]
  - THERAPEUTIC RESPONSE DECREASED [None]
